FAERS Safety Report 20053936 (Version 1)
Quarter: 2021Q4

REPORT INFORMATION
  Report Type: Spontaneous
  Country: US (occurrence: US)
  Receive Date: 20211110
  Receipt Date: 20211110
  Transmission Date: 20220303
  Serious: No
  Sender: FDA-Public Use
  Company Number: US-ORGANON-O2111USA000571

PATIENT
  Age: 17 Year
  Sex: Female
  Weight: 36.287 kg

DRUGS (1)
  1. NEXPLANON [Suspect]
     Active Substance: ETONOGESTREL
     Indication: Contraception
     Dosage: 1 IMPLANT FOR 4 YEARS IN LEFT ARM
     Route: 059
     Dates: start: 20200807

REACTIONS (3)
  - Mood swings [Unknown]
  - Weight decreased [Unknown]
  - Acne [Unknown]

NARRATIVE: CASE EVENT DATE: 20200801
